FAERS Safety Report 6780168-2 (Version None)
Quarter: 2010Q2

REPORT INFORMATION
  Report Type: 
  Country: None (occurrence: None)
  Receive Date: 20100618
  Receipt Date: 20100608
  Transmission Date: 20101027
  Serious: Yes (Other)
  Sender: FDA-Public Use
  Company Number: GB-GENZYME-POMP-1000972

PATIENT
  Sex: Female
  Weight: 30 kg

DRUGS (7)
  1. MYOZYME [Suspect]
     Indication: GLYCOGEN STORAGE DISEASE TYPE II
     Dosage: 40 MG/KG, Q2W
     Route: 042
     Dates: start: 20030601
  2. MELATONIN [Concomitant]
     Indication: POOR QUALITY SLEEP
     Dosage: 7.5 MG, UNK
     Route: 065
  3. HYOSCINE HBR HYT [Concomitant]
     Indication: DRUG USE FOR UNKNOWN INDICATION
     Dosage: 150 MCG, UNK
     Route: 065
  4. NULYTELY [Concomitant]
     Indication: CONSTIPATION
     Dosage: UNK UNK, QD
     Route: 048
  5. COLISTIN [Concomitant]
     Indication: DRUG USE FOR UNKNOWN INDICATION
     Dosage: 4.0 UNK, QD
     Route: 065
  6. CARBOCISTEINE [Concomitant]
     Indication: DRUG USE FOR UNKNOWN INDICATION
     Dosage: 500 MG, UNK
     Route: 065
  7. AUGMENTIN '125' [Concomitant]
     Indication: DRUG USE FOR UNKNOWN INDICATION
     Dosage: 562 MG, UNK
     Route: 065

REACTIONS (2)
  - DISEASE PROGRESSION [None]
  - GLYCOGEN STORAGE DISEASE TYPE II [None]
